FAERS Safety Report 5521372-0 (Version None)
Quarter: 2007Q4

REPORT INFORMATION
  Report Type: 
  Country: None (occurrence: None)
  Receive Date: 20071119
  Receipt Date: 20071113
  Transmission Date: 20080405
  Serious: Yes (Hospitalization, Other)
  Sender: FDA-Public Use
  Company Number: US-GENENTECH-233031

PATIENT
  Sex: Female
  Weight: 75.1 kg

DRUGS (5)
  1. OMALIZUMAB [Suspect]
     Indication: ASTHMA
     Dosage: 300 MG, Q4W
     Route: 058
     Dates: start: 20031117, end: 20061021
  2. ORAL STEROID [Concomitant]
     Indication: DRUG USE FOR UNKNOWN INDICATION
  3. FLUNISOLIDE [Concomitant]
     Indication: ASTHMA
  4. ALBUTEROL [Concomitant]
     Indication: ASTHMA
  5. PREDNISONE TAB [Concomitant]
     Indication: ASTHMA

REACTIONS (1)
  - ACTINOMYCOTIC PULMONARY INFECTION [None]
